FAERS Safety Report 9242761 (Version 1)
Quarter: 2013Q2

REPORT INFORMATION
  Report Type: Spontaneous
  Country: US (occurrence: US)
  Receive Date: 20130419
  Receipt Date: 20130419
  Transmission Date: 20140414
  Serious: Yes (Hospitalization)
  Sender: FDA-Public Use
  Company Number: US-VERTEX PHARMACEUTICALS INC.-2013-005089

PATIENT
  Age: 36 Year
  Sex: Male

DRUGS (3)
  1. INCIVEK [Suspect]
     Indication: HEPATITIS C
     Dosage: UNK
     Route: 048
     Dates: start: 20130406, end: 201304
  2. RIBAVIRIN [Suspect]
     Indication: HEPATITIS C
     Dosage: UNK
     Dates: start: 20130406, end: 201304
  3. PEGINTERFERON [Suspect]
     Indication: HEPATITIS C
     Dosage: UNK
     Dates: start: 20130406, end: 201304

REACTIONS (4)
  - Renal failure [Recovered/Resolved]
  - Unresponsive to stimuli [Recovered/Resolved]
  - Mouth ulceration [Recovered/Resolved]
  - Myalgia [Recovered/Resolved]
